FAERS Safety Report 8338929-4 (Version None)
Quarter: 2012Q2

REPORT INFORMATION
  Report Type: 
  Country: None (occurrence: None)
  Receive Date: 20120506
  Receipt Date: 20120423
  Transmission Date: 20120825
  Serious: Yes (Other)
  Sender: FDA-Public Use
  Company Number: DE-MYLANLABS-2012S1008274

PATIENT
  Age: 52 Year
  Sex: Female
  Weight: 54 kg

DRUGS (5)
  1. EZETIMIBE [Suspect]
     Indication: HYPERLIPIDAEMIA
     Dosage: DAILY DOSE: 10 MG MILLGRAM(S) EVERY DAYS
     Route: 048
     Dates: start: 20100101, end: 20100101
  2. SIMVASTATIN [Suspect]
     Indication: HYPERLIPIDAEMIA
     Dosage: DAILY DOSE: 20 MG MILLGRAM(S) EVERY DAYS
     Route: 048
     Dates: start: 20020101, end: 20050101
  3. COLESEVELAM HYDROCHLORIDE [Suspect]
     Indication: HYPERLIPIDAEMIA
     Dosage: DAILY DOSE: 625 MG MILLGRAM(S) EVERY DAYS
     Route: 048
     Dates: start: 20110530, end: 20110707
  4. TREDAPTIVE [Suspect]
     Indication: HYPERLIPIDAEMIA
     Dosage: 1000/20 MG
     Route: 048
     Dates: start: 20110708
  5. ATORVASTATIN CALCIUM [Suspect]
     Indication: HYPERLIPIDAEMIA
     Dosage: DAILY DOSE: 20 MG MILLGRAM(S) EVERY DAYS
     Route: 048
     Dates: start: 20080101, end: 20080101

REACTIONS (6)
  - INFLUENZA LIKE ILLNESS [None]
  - MUSCULAR WEAKNESS [None]
  - ARTHRALGIA [None]
  - MUSCLE SPASMS [None]
  - ABDOMINAL DISCOMFORT [None]
  - MYALGIA [None]
